FAERS Safety Report 7473926-2 (Version None)
Quarter: 2011Q2

REPORT INFORMATION
  Report Type: 
  Country: None (occurrence: None)
  Receive Date: 20110511
  Receipt Date: 20110422
  Transmission Date: 20111010
  Serious: No
  Sender: FDA-Public Use
  Company Number: US-B.I. PHARMACEUTICALS,INC./RIDGEFIELD-2011-BP-08379BP

PATIENT
  Sex: Female

DRUGS (4)
  1. PRESERVISION VITAMIN [Concomitant]
     Indication: PROPHYLAXIS
     Route: 048
  2. SPIRIVA [Suspect]
     Indication: CHRONIC OBSTRUCTIVE PULMONARY DISEASE
     Dosage: 18 MCG
     Route: 055
     Dates: start: 20080101
  3. FISH OIL [Concomitant]
     Indication: PROPHYLAXIS
     Route: 048
  4. ASPIRIN [Concomitant]
     Indication: PROPHYLAXIS
     Dosage: 81 MG
     Route: 048

REACTIONS (5)
  - DRY EYE [None]
  - DRY MOUTH [None]
  - MACULAR DEGENERATION [None]
  - EYE PAIN [None]
  - CONSTIPATION [None]
